FAERS Safety Report 7879898-0 (Version None)
Quarter: 2011Q4

REPORT INFORMATION
  Report Type: 
  Country: None (occurrence: None)
  Receive Date: 20111101
  Receipt Date: 20111026
  Transmission Date: 20120403
  Serious: Yes (Other)
  Sender: FDA-Public Use
  Company Number: BR-PFIZER INC-2011261305

PATIENT
  Age: 51 Year
  Sex: Female

DRUGS (6)
  1. LOSARTAN POTASSIUM [Concomitant]
     Indication: HYPERTENSION
     Dosage: 25 MG, 1X/DAY
     Dates: start: 20090101
  2. TOTELLE [Concomitant]
     Indication: HORMONE LEVEL ABNORMAL
     Dosage: UNK
  3. PRASTERONE [Concomitant]
     Indication: HORMONE LEVEL ABNORMAL
     Dosage: 25MG, NUK
     Dates: start: 20110901
  4. VARENICLINE TARTRATE [Suspect]
     Indication: TOBACCO USER
     Dosage: UNK
     Route: 048
     Dates: start: 20110817
  5. FLAXSEED OIL [Concomitant]
     Indication: DRY EYE
     Dosage: UNK
     Dates: start: 20110801
  6. CLONAZEPAM [Concomitant]
     Indication: ANXIETY
     Dosage: 0.5MG, 4 DROPS SPORADICALLY

REACTIONS (1)
  - BLOOD PRESSURE FLUCTUATION [None]
